FAERS Safety Report 7637468-3 (Version None)
Quarter: 2011Q3

REPORT INFORMATION
  Report Type: 
  Country: None (occurrence: None)
  Receive Date: 20110726
  Receipt Date: 20110719
  Transmission Date: 20111222
  Serious: Yes (Other)
  Sender: FDA-Public Use
  Company Number: PHEH2008US00628

PATIENT
  Sex: Female
  Weight: 86.168 kg

DRUGS (31)
  1. ESTRADERM [Suspect]
     Indication: MENOPAUSE
     Dosage: 0.05-0.1 PATCH
     Route: 062
     Dates: start: 19830318, end: 20020101
  2. ESTRADERM [Suspect]
     Dates: start: 19880101, end: 20020101
  3. CLIMARA [Suspect]
     Indication: MENOPAUSE
     Dosage: 0.1 MG,
     Dates: start: 19980801, end: 19981101
  4. AMARYL [Concomitant]
     Dosage: 4MG, B.I.D.
     Route: 048
  5. NEURONTIN [Concomitant]
     Dosage: 300MG, Q.H.S.
     Route: 048
  6. PERCOCET [Concomitant]
     Dosage: 5MG, QD
  7. VIVELLE [Suspect]
     Indication: MENOPAUSE
     Dosage: 0.075 MG,
     Dates: end: 20020101
  8. PREMPRO [Suspect]
  9. LIPITOR [Concomitant]
     Dosage: 10 MG, QD
     Route: 048
  10. SYNTHROID [Concomitant]
  11. PROZAC [Concomitant]
     Indication: DEPRESSION
  12. LANTUS [Concomitant]
     Route: 058
  13. KEFLEX [Concomitant]
     Dosage: 500MG, T.I.D.
  14. MEGESTROL ACETATE [Concomitant]
     Dosage: 0.5 TABLET DAILY
  15. NOVOLOG [Concomitant]
     Dosage: 12-13 UNITS, T.I.D.
     Route: 058
  16. PREVACID [Concomitant]
     Route: 048
  17. SIMVASTATIN [Concomitant]
  18. VIVELLE-DOT [Suspect]
     Indication: MENOPAUSE
     Dosage: 0.075
     Dates: start: 20011217, end: 20020211
  19. ESTRACE [Suspect]
     Indication: MENOPAUSE
     Dosage: 0.1 MG,
     Dates: start: 19921105, end: 20030318
  20. LEVOTHYROXINE SODIUM [Concomitant]
     Indication: HYPOTHYROIDISM
  21. PRINIVIL [Concomitant]
     Dosage: 20 MG, QD
     Route: 048
  22. HYDROCHLOROTHIAZIDE [Concomitant]
     Dosage: 25 MG, QD
     Route: 048
  23. GLUCOPHAGE [Concomitant]
     Dosage: 1000MG, QD
     Route: 048
  24. PREMARIN [Suspect]
     Indication: MENOPAUSE
     Dosage: 0.125-0.625
     Dates: start: 19830101, end: 19920101
  25. PROVERA [Suspect]
     Indication: MENOPAUSE
     Dosage: 10,2.5,5
     Dates: start: 19830101, end: 20020301
  26. ESTRACE [Suspect]
     Indication: MENOPAUSE
     Dates: start: 19950807, end: 19950807
  27. METFORMIN HCL [Concomitant]
     Indication: DIABETES MELLITUS
  28. INSULIN [Concomitant]
     Dosage: LOW DOSE
  29. LYRICA [Concomitant]
     Indication: NEUROPATHY PERIPHERAL
     Dates: start: 20060101
  30. WELLBUTRIN SR [Concomitant]
     Dosage: 100 MG , QD
     Route: 048
  31. HYDROCODONE BITARTRATE [Concomitant]

REACTIONS (17)
  - HOT FLUSH [None]
  - BRONCHIAL HYPERREACTIVITY [None]
  - CHEST PAIN [None]
  - BRONCHITIS [None]
  - CHOLELITHIASIS [None]
  - ANAEMIA [None]
  - UPPER RESPIRATORY TRACT INFECTION [None]
  - BREAST CANCER [None]
  - GASTROOESOPHAGEAL REFLUX DISEASE [None]
  - OESTROGEN RECEPTOR ASSAY POSITIVE [None]
  - POST HERPETIC NEURALGIA [None]
  - DYSPNOEA [None]
  - LYMPHOMA [None]
  - LYMPHADENOPATHY [None]
  - LYMPHOEDEMA [None]
  - SMEAR CERVIX ABNORMAL [None]
  - NEUTROPENIA [None]
